FAERS Safety Report 19146806 (Version 2)
Quarter: 2021Q3

REPORT INFORMATION
  Report Type: Spontaneous
  Country: US (occurrence: US)
  Receive Date: 20210416
  Receipt Date: 20210705
  Transmission Date: 20211014
  Serious: No
  Sender: FDA-Public Use
  Company Number: US-PFIZER INC-2021416216

PATIENT
  Age: 80 Year
  Sex: Female

DRUGS (2)
  1. FEMARA [Suspect]
     Active Substance: LETROZOLE
     Dosage: UNK
  2. IBRANCE [Suspect]
     Active Substance: PALBOCICLIB
     Dosage: 125 MG

REACTIONS (8)
  - Somnolence [Unknown]
  - Pleural effusion [Unknown]
  - Sinus congestion [Unknown]
  - Feeling jittery [Unknown]
  - Fatigue [Unknown]
  - Neoplasm progression [Unknown]
  - Hypoacusis [Unknown]
  - Ear discomfort [Unknown]
